FAERS Safety Report 8381125-5 (Version None)
Quarter: 2012Q2

REPORT INFORMATION
  Report Type: 
  Country: None (occurrence: None)
  Receive Date: 20120523
  Receipt Date: 20120510
  Transmission Date: 20120825
  Serious: Yes (Hospitalization)
  Sender: FDA-Public Use
  Company Number: FR-ELI_LILLY_AND_COMPANY-FR201205003570

PATIENT
  Age: 64 Year
  Sex: Male

DRUGS (3)
  1. CARBOPLATIN                             /SCH/ [Concomitant]
     Indication: LUNG NEOPLASM MALIGNANT
     Dosage: 680 MG, UNKNOWN
     Route: 042
     Dates: start: 20120307
  2. ALIMTA [Suspect]
     Dosage: 970 MG, UNKNOWN
     Route: 042
     Dates: start: 20120307
  3. AVASTIN [Concomitant]
     Indication: LUNG NEOPLASM MALIGNANT
     Dosage: 740 MG, UNKNOWN
     Route: 042
     Dates: start: 20120307

REACTIONS (7)
  - BODY TEMPERATURE INCREASED [None]
  - PRODUCT QUALITY ISSUE [None]
  - BONE MARROW FAILURE [None]
  - COUGH [None]
  - INFLAMMATION [None]
  - LUNG DISORDER [None]
  - PRODUCTIVE COUGH [None]
